FAERS Safety Report 5885142-6 (Version None)
Quarter: 2008Q3

REPORT INFORMATION
  Report Type: 
  Country: None (occurrence: None)
  Receive Date: 20080915
  Receipt Date: 20080915
  Transmission Date: 20090109
  Serious: Yes (Other)
  Sender: FDA-Public Use
  Company Number: None

PATIENT
  Sex: Female
  Weight: 95.2554 kg

DRUGS (2)
  1. GABAPENTIN [Suspect]
     Indication: MYALGIA
     Dosage: ONE  4 TIMES A DAY  PO
     Route: 048
     Dates: start: 20080901, end: 20080902
  2. GABAPENTIN [Suspect]
     Indication: NEURALGIA
     Dosage: ONE  4 TIMES A DAY  PO
     Route: 048
     Dates: start: 20080901, end: 20080902

REACTIONS (6)
  - CHEST PAIN [None]
  - CONVULSION [None]
  - EYE MOVEMENT DISORDER [None]
  - HEADACHE [None]
  - PAIN [None]
  - THERAPEUTIC RESPONSE UNEXPECTED WITH DRUG SUBSTITUTION [None]
